FAERS Safety Report 7391068-1 (Version None)
Quarter: 2011Q1

REPORT INFORMATION
  Report Type: 
  Country: None (occurrence: None)
  Receive Date: 20110324
  Receipt Date: 20110316
  Transmission Date: 20110831
  Serious: Yes (Other)
  Sender: FDA-Public Use
  Company Number: 1000019301

PATIENT
  Age: 14 Year
  Sex: Female

DRUGS (11)
  1. SEROQUEL [Suspect]
     Indication: SOCIAL PHOBIA
     Dosage: 25 MG QAM, 50 MG QPM, ORAL
     Route: 048
     Dates: start: 20110201, end: 20110101
  2. SEROQUEL [Suspect]
     Indication: DEPRESSION
     Dosage: 25 MG QAM, 50 MG QPM, ORAL
     Route: 048
     Dates: start: 20110201, end: 20110101
  3. SEROQUEL [Suspect]
     Indication: SOCIAL PHOBIA
     Dosage: 50 MG QAM, 100 MG QPM, ORAL
     Route: 048
     Dates: start: 20110101, end: 20110309
  4. SEROQUEL [Suspect]
     Indication: DEPRESSION
     Dosage: 50 MG QAM, 100 MG QPM, ORAL
     Route: 048
     Dates: start: 20110101, end: 20110309
  5. LEXAPRO [Suspect]
     Indication: SOCIAL PHOBIA
     Dosage: 5 MG (5 MG, 1 IN 1 D), ORAL; 10 MG (10 MG, 1 IN 1 D), ORAL
     Route: 048
     Dates: start: 20080101
  6. LEXAPRO [Suspect]
     Indication: DEPRESSION
     Dosage: 5 MG (5 MG, 1 IN 1 D), ORAL; 10 MG (10 MG, 1 IN 1 D), ORAL
     Route: 048
     Dates: start: 20080101
  7. LEXAPRO [Suspect]
     Indication: SOCIAL PHOBIA
     Dosage: 15 MG (15 MG, 1 IN 1 D), ORAL; 10 MG (10 MG, 1 IN 1 D), ORAL
     Route: 048
     Dates: start: 20110313
  8. LEXAPRO [Suspect]
     Indication: DEPRESSION
     Dosage: 15 MG (15 MG, 1 IN 1 D), ORAL; 10 MG (10 MG, 1 IN 1 D), ORAL
     Route: 048
     Dates: start: 20110313
  9. LEXAPRO [Suspect]
     Indication: SOCIAL PHOBIA
     Dosage: 15 MG (15 MG, 1 IN 1 D), ORAL; 10 MG (10 MG, 1 IN 1 D), ORAL
     Route: 048
     Dates: start: 20101101, end: 20110312
  10. LEXAPRO [Suspect]
     Indication: DEPRESSION
     Dosage: 15 MG (15 MG, 1 IN 1 D), ORAL; 10 MG (10 MG, 1 IN 1 D), ORAL
     Route: 048
     Dates: start: 20101101, end: 20110312
  11. CLONIDINE (CLONIDINE) (0.1 MILLIGRAM, TABLETS) (CLONIDINE) [Concomitant]

REACTIONS (8)
  - MANIA [None]
  - INITIAL INSOMNIA [None]
  - AGITATION [None]
  - GRIMACING [None]
  - BIPOLAR DISORDER [None]
  - DYSTONIA [None]
  - BRUXISM [None]
  - DYSKINESIA [None]
